FAERS Safety Report 7664642-2 (Version None)
Quarter: 2011Q3

REPORT INFORMATION
  Report Type: 
  Country: None (occurrence: None)
  Receive Date: 20110806
  Receipt Date: 20110105
  Transmission Date: 20111222
  Serious: No
  Sender: FDA-Public Use
  Company Number: US-ABBOTT-11P-163-0695798-00

PATIENT
  Sex: Female
  Weight: 86.714 kg

DRUGS (5)
  1. NIASPAN [Suspect]
     Indication: BLOOD GLUCOSE ABNORMAL
     Dosage: 500MG AT HOUR OF SLEEP
     Route: 048
     Dates: start: 20101203, end: 20110103
  2. LEVOTHYROXINE SODIUM [Concomitant]
     Indication: HYPOTHYROIDISM
  3. SIMVASTATIN [Concomitant]
     Indication: BLOOD CHOLESTEROL INCREASED
  4. NIASPAN [Suspect]
     Indication: BLOOD CHOLESTEROL INCREASED
  5. DILTIAZEM [Concomitant]
     Indication: HEART RATE IRREGULAR

REACTIONS (2)
  - MYALGIA [None]
  - GAIT DISTURBANCE [None]
